FAERS Safety Report 18894098 (Version 1)
Quarter: 2021Q1

REPORT INFORMATION
  Report Type: Spontaneous
  Country: US (occurrence: US)
  Receive Date: 20210215
  Receipt Date: 20210215
  Transmission Date: 20210420
  Serious: Yes (Other)
  Sender: FDA-Public Use
  Company Number: US-PFIZER INC-2021130478

PATIENT
  Age: 77 Year
  Sex: Male

DRUGS (7)
  1. OTEZLA [Concomitant]
     Active Substance: APREMILAST
  2. TALTZ [Concomitant]
     Active Substance: IXEKIZUMAB
  3. HUMIRA [Concomitant]
     Active Substance: ADALIMUMAB
  4. CIMZIA [Concomitant]
     Active Substance: CERTOLIZUMAB PEGOL
  5. XELJANZ [Suspect]
     Active Substance: TOFACITINIB CITRATE
     Dosage: UNK
  6. SKYRIZI [Concomitant]
     Active Substance: RISANKIZUMAB-RZAA
  7. XELJANZ XR [Suspect]
     Active Substance: TOFACITINIB CITRATE

REACTIONS (3)
  - Psoriatic arthropathy [Unknown]
  - Psoriasis [Unknown]
  - Drug ineffective [Unknown]
